FAERS Safety Report 9029073 (Version 1)
Quarter: 2013Q1

REPORT INFORMATION
  Report Type: Spontaneous
  Country: CA (occurrence: CA)
  Receive Date: 20130122
  Receipt Date: 20130122
  Transmission Date: 20140127
  Serious: Yes (Other)
  Sender: FDA-Public Use
  Company Number: CA-AMGEN-CANSP2013003147

PATIENT
  Age: 67 Year
  Sex: Female
  Weight: 48.18 kg

DRUGS (1)
  1. PROLIA [Suspect]
     Indication: OSTEOPOROSIS POSTMENOPAUSAL
     Dosage: UNK

REACTIONS (4)
  - Intestinal obstruction [Unknown]
  - Spinal fracture [Unknown]
  - Abasia [Unknown]
  - Dysstasia [Unknown]
